FAERS Safety Report 11122265 (Version 1)
Quarter: 2015Q2

REPORT INFORMATION
  Report Type: Spontaneous
  Country: US (occurrence: US)
  Receive Date: 20150519
  Receipt Date: 20150519
  Transmission Date: 20150821
  Serious: No
  Sender: FDA-Public Use
  Company Number: US-BAYER-2015-247924

PATIENT
  Age: 71 Year
  Sex: Female
  Weight: 54 kg

DRUGS (4)
  1. LIPITOR [Concomitant]
     Active Substance: ATORVASTATIN CALCIUM
  2. ALEVE [Suspect]
     Active Substance: NAPROXEN SODIUM
     Indication: MUSCULOSKELETAL PAIN
     Dosage: 1 DF, BID
     Route: 048
     Dates: start: 2013
  3. OS-CAL [CALCIUM CARBONATE,COLECALCIFEROL] [Concomitant]
  4. ECOTRIN [Concomitant]
     Active Substance: ASPIRIN

REACTIONS (1)
  - Incorrect drug administration duration [None]

NARRATIVE: CASE EVENT DATE: 2013
